FAERS Safety Report 16107284 (Version 1)
Quarter: 2019Q1

REPORT INFORMATION
  Report Type: Report from Study
  Country: CA (occurrence: CA)
  Receive Date: 20190322
  Receipt Date: 20190322
  Transmission Date: 20190418
  Serious: Yes (Death)
  Sender: FDA-Public Use
  Company Number: CA-TAKEDA-2019TUS016337

PATIENT
  Age: 49 Year
  Sex: Male

DRUGS (2)
  1. BRIGATINIB [Suspect]
     Active Substance: BRIGATINIB
     Indication: ANAPLASTIC LYMPHOMA KINASE GENE MUTATION
     Dosage: 90 MILLIGRAM, QD
     Route: 048
     Dates: start: 201903
  2. BRIGATINIB [Suspect]
     Active Substance: BRIGATINIB
     Indication: NON-SMALL CELL LUNG CANCER METASTATIC

REACTIONS (1)
  - Death [Fatal]

NARRATIVE: CASE EVENT DATE: 20190306
